FAERS Safety Report 24204902 (Version 2)
Quarter: 2024Q3

REPORT INFORMATION
  Report Type: Spontaneous
  Country: US (occurrence: US)
  Receive Date: 20240813
  Receipt Date: 20240906
  Transmission Date: 20241017
  Serious: Yes (Hospitalization)
  Sender: Thea Pharma
  Company Number: US-MLMSERVICE-20240726-PI144064-00192-1

PATIENT
  Age: 71 Year
  Sex: Male

DRUGS (1)
  1. LATANOPROST [Suspect]
     Active Substance: LATANOPROST
     Indication: Intraocular pressure increased

REACTIONS (2)
  - Condition aggravated [Recovering/Resolving]
  - Ectropion [Recovering/Resolving]
